FAERS Safety Report 12378634 (Version 1)
Quarter: 2016Q2

REPORT INFORMATION
  Report Type: Report from Study
  Country: AU (occurrence: AU)
  Receive Date: 20160517
  Receipt Date: 20160517
  Transmission Date: 20160815
  Serious: Yes (Death, Hospitalization)
  Sender: FDA-Public Use
  Company Number: AU-CELGENEUS-AUS-2016051012

PATIENT
  Age: 63 Year
  Sex: Male

DRUGS (1)
  1. POMALIDOMIDE [Suspect]
     Active Substance: POMALIDOMIDE
     Indication: PLASMA CELL MYELOMA
     Dosage: 2 MILLIGRAM
     Route: 048
     Dates: start: 20130212, end: 20130311

REACTIONS (6)
  - Febrile neutropenia [Recovered/Resolved]
  - Hyperhidrosis [Fatal]
  - Acute myocardial infarction [Recovered/Resolved]
  - Chest pain [Fatal]
  - Dyspnoea [Fatal]
  - Diarrhoea [Recovered/Resolved]

NARRATIVE: CASE EVENT DATE: 20130311
